FAERS Safety Report 4770946-3 (Version None)
Quarter: 2005Q3

REPORT INFORMATION
  Report Type: 
  Country: None (occurrence: None)
  Receive Date: 20050915
  Receipt Date: 20050909
  Transmission Date: 20060218
  Serious: Yes (Other)
  Sender: FDA-Public Use
  Company Number: PHNR2005AU01366

PATIENT
  Sex: Female

DRUGS (2)
  1. CAFERGOT [Suspect]
     Indication: MIGRAINE
     Dosage: TOOK 2 IN THE MORNING
     Dates: start: 20050908
  2. THYROXINE [Concomitant]

REACTIONS (2)
  - AMNESIA [None]
  - CONFUSIONAL STATE [None]
